FAERS Safety Report 5634544-1 (Version None)
Quarter: 2008Q1

REPORT INFORMATION
  Report Type: 
  Country: None (occurrence: None)
  Receive Date: 20080222
  Receipt Date: 20080211
  Transmission Date: 20080703
  Serious: Yes (Hospitalization)
  Sender: FDA-Public Use
  Company Number: PHBS2008IT02078

PATIENT
  Age: 9 Year
  Sex: Male

DRUGS (2)
  1. TOPIRAMATE [Concomitant]
     Dosage: UNK, UNK
     Route: 048
     Dates: start: 20041216
  2. RITALIN [Suspect]
     Indication: ATTENTION DEFICIT/HYPERACTIVITY DISORDER
     Dosage: 15 MG/DAY
     Route: 048
     Dates: start: 20040324

REACTIONS (2)
  - COORDINATION ABNORMAL [None]
  - PSYCHOMOTOR RETARDATION [None]
